FAERS Safety Report 5401602-6 (Version None)
Quarter: 2007Q3

REPORT INFORMATION
  Report Type: 
  Country: None (occurrence: None)
  Receive Date: 20070731
  Receipt Date: 20070723
  Transmission Date: 20080115
  Serious: Yes (Hospitalization, Disabling)
  Sender: FDA-Public Use
  Company Number: US-ASTRAZENECA-2007UW17896

PATIENT
  Age: 73 Year
  Sex: Male
  Weight: 94.1 kg

DRUGS (9)
  1. SEROQUEL [Suspect]
     Indication: SLEEP DISORDER
     Route: 048
  2. ERATADINE [Concomitant]
     Dates: start: 20050310
  3. VERAPAMIL [Concomitant]
     Dates: start: 20041102
  4. NEXIUM [Concomitant]
     Dates: start: 20041102
  5. OXYBUTYNIN CHLORIDE [Concomitant]
     Dates: start: 20070707
  6. CITALOPRAM HYDROBROMIDE [Concomitant]
     Dates: start: 20070707
  7. RAZADYNE [Concomitant]
     Dates: start: 20051204
  8. FUROSEMIDE [Concomitant]
     Dates: start: 20061229
  9. METAMUCIL [Concomitant]
     Dates: start: 20060307

REACTIONS (2)
  - INJURY [None]
  - TENDON RUPTURE [None]
